FAERS Safety Report 10066809 (Version 1)
Quarter: 2014Q2

REPORT INFORMATION
  Report Type: Report from Study
  Country: BR (occurrence: BR)
  Receive Date: 20140408
  Receipt Date: 20140408
  Transmission Date: 20141212
  Serious: Yes (Other)
  Sender: FDA-Public Use
  Company Number: PHHY2014BR042579

PATIENT
  Sex: Male
  Weight: 50 kg

DRUGS (1)
  1. RITALIN [Suspect]
     Indication: DISTURBANCE IN ATTENTION
     Dosage: 1 DF, BID (ONE IN THE MORNING AND 1 AT AFTERNOON)

REACTIONS (9)
  - Upper limb fracture [Not Recovered/Not Resolved]
  - Multiple fractures [Recovering/Resolving]
  - Gait disturbance [Unknown]
  - Learning disorder [Recovering/Resolving]
  - Intentional self-injury [Recovering/Resolving]
  - Psychomotor hyperactivity [Recovering/Resolving]
  - Sleep talking [Recovering/Resolving]
  - Aggression [Recovering/Resolving]
  - Disturbance in attention [Recovering/Resolving]
